FAERS Safety Report 7169395-2 (Version None)
Quarter: 2010Q4

REPORT INFORMATION
  Report Type: 
  Country: None (occurrence: None)
  Receive Date: 20101216
  Receipt Date: 20100111
  Transmission Date: 20110411
  Serious: No
  Sender: FDA-Public Use
  Company Number: US-AMGEN-KDL384956

PATIENT

DRUGS (11)
  1. ENBREL [Suspect]
     Indication: PRODUCT USED FOR UNKNOWN INDICATION
     Dosage: 50 MG, QWK
     Route: 058
  2. DULOXETINE HYDROCHLORIDE [Concomitant]
     Dosage: 30 MG, UNK
  3. HYDROXYCHLOROQUINE SULFATE [Concomitant]
     Dosage: 200 MG, UNK
  4. METHOTREXATE [Concomitant]
     Dosage: 2.5 MG, UNK
  5. NAPROXEN [Concomitant]
     Dosage: 500 MG, UNK
  6. BUPROPION [Concomitant]
     Dosage: 75 MG, UNK
  7. MULTI-VITAMINS [Concomitant]
     Dosage: UNK UNK, UNK
  8. IRON [Concomitant]
     Dosage: 325 MG, UNK
  9. VITAMIN B COMPLEX [Concomitant]
     Dosage: UNK UNK, UNK
  10. LYSINE [Concomitant]
     Dosage: 500 MG, UNK
  11. LAMOTRIGINE [Concomitant]

REACTIONS (2)
  - INJECTION SITE RASH [None]
  - INJECTION SITE SWELLING [None]
